FAERS Safety Report 21285184 (Version 1)
Quarter: 2022Q3

REPORT INFORMATION
  Report Type: Spontaneous
  Country: FR (occurrence: FR)
  Receive Date: 20220902
  Receipt Date: 20220902
  Transmission Date: 20221026
  Serious: Yes (Hospitalization)
  Sender: FDA-Public Use
  Company Number: None

PATIENT
  Age: 91 Year
  Sex: Male
  Weight: 79 kg

DRUGS (2)
  1. PANTOPRAZOLE SODIUM ANHYDROUS [Suspect]
     Active Substance: PANTOPRAZOLE SODIUM ANHYDROUS
     Indication: Product used for unknown indication
     Dosage: FREQUENCY TIME : 1 DAY, UNIT DOSE: 20 MG, THERAPY START DATE: NASK, PANTOPRAZOLE SODIQUE ANHYDRE
     Dates: end: 20220413
  2. ELIQUIS [Suspect]
     Active Substance: APIXABAN
     Indication: Atrial fibrillation
     Dosage: FORM STRENGTH  2.5 MG, FREQUENCY TIME : 1 DAY, UNIT DOSE: 5 MG, THERAPY START DATE: NASK
     Dates: end: 20220414

REACTIONS (2)
  - Eosinophilic pleural effusion [Recovered/Resolved]
  - Haemothorax [Recovered/Resolved]

NARRATIVE: CASE EVENT DATE: 20220404
